FAERS Safety Report 8959109 (Version 1)
Quarter: 2012Q4

REPORT INFORMATION
  Report Type: 
  Country: BE (occurrence: BE)
  Receive Date: 20121211
  Receipt Date: 20121211
  Transmission Date: 20130627
  Serious: Yes (Hospitalization)
  Sender: FDA-Public Use
  Company Number: BE-MYLANLABS-2012S1024793

PATIENT
  Age: 85 Year
  Sex: Female

DRUGS (7)
  1. MIRTAZAPINE [Suspect]
     Indication: DEPRESSION
     Dosage: 30mg
     Route: 065
  2. VENLAFAXINE [Interacting]
     Indication: DEPRESSION
     Dosage: 150mg
     Route: 065
  3. BISOPROLOL [Concomitant]
     Dosage: 2.5mg
     Route: 065
  4. LEVOTHYROXINE SODIUM [Concomitant]
     Indication: HYPERTHYROIDISM
     Dosage: 125mcg
     Route: 065
  5. SODIUM PICOSULFATE [Concomitant]
     Indication: CONSTIPATION
     Route: 065
  6. PANTOPRAZOLE [Concomitant]
     Dosage: 20mg
     Route: 065
  7. CALCIUM D3                         /01483701/ [Concomitant]
     Route: 065

REACTIONS (2)
  - Serotonin syndrome [Recovered/Resolved]
  - Drug interaction [Recovered/Resolved]
